FAERS Safety Report 11484951 (Version 1)
Quarter: 2015Q3

REPORT INFORMATION
  Report Type: Spontaneous
  Country: US (occurrence: US)
  Receive Date: 20150909
  Receipt Date: 20150909
  Transmission Date: 20151125
  Serious: No
  Sender: FDA-Public Use
  Company Number: US-JAZZ-2015-US-000478

PATIENT
  Sex: Female

DRUGS (1)
  1. XYREM [Suspect]
     Active Substance: SODIUM OXYBATE
     Indication: NARCOLEPSY
     Dosage: 4.5 G, BID
     Route: 048
     Dates: start: 201405

REACTIONS (6)
  - Feeling abnormal [Unknown]
  - Weight decreased [Unknown]
  - Moaning [Unknown]
  - Initial insomnia [Unknown]
  - Parasomnia [Unknown]
  - Crying [Unknown]

NARRATIVE: CASE EVENT DATE: 2014
